FAERS Safety Report 10039728 (Version 2)
Quarter: 2014Q2

REPORT INFORMATION
  Report Type: Spontaneous
  Country: GB (occurrence: GB)
  Receive Date: 20140326
  Receipt Date: 20140417
  Transmission Date: 20141212
  Serious: Yes (Life-Threatening)
  Sender: FDA-Public Use
  Company Number: GB-PFIZER INC-2014085808

PATIENT
  Age: 71 Year
  Sex: Male

DRUGS (1)
  1. TRANEXAMIC ACID [Suspect]
     Indication: WOUND SECRETION
     Dosage: 1 G, UNK
     Route: 042
     Dates: start: 20140208, end: 20140308

REACTIONS (1)
  - Allergic respiratory disease [Recovered/Resolved]
